FAERS Safety Report 10897467 (Version 2)
Quarter: 2015Q2

REPORT INFORMATION
  Report Type: Report from Study
  Country: BR (occurrence: BR)
  Receive Date: 20150309
  Receipt Date: 20150401
  Transmission Date: 20150821
  Serious: Yes (Other)
  Sender: FDA-Public Use
  Company Number: BR-SA-2015SA026792

PATIENT
  Sex: Male
  Weight: 62 kg

DRUGS (12)
  1. VALSARTAN. [Concomitant]
     Active Substance: VALSARTAN
     Dosage: STRENGTH: 320 MG
     Dates: start: 2012
  2. RUSOVAS [Concomitant]
     Active Substance: ROSUVASTATIN
  3. LASIX [Concomitant]
     Active Substance: FUROSEMIDE
     Dosage: STRENGTH: 40 MG
     Dates: start: 2012
  4. LEVOID [Concomitant]
     Active Substance: LEVOTHYROXINE
     Dates: start: 2012
  5. PRESSAT [Concomitant]
     Active Substance: AMLODIPINE BESYLATE
     Indication: BLOOD PRESSURE
     Dates: start: 2013
  6. LANTUS SOLOSTAR [Suspect]
     Active Substance: INSULIN GLARGINE
     Indication: DIABETES MELLITUS
     Route: 065
     Dates: start: 2012
  7. ALDACTONE [Concomitant]
     Active Substance: SPIRONOLACTONE
     Indication: RENAL DISORDER
     Dates: start: 2014
  8. LIPIDIL [Concomitant]
     Active Substance: FENOFIBRATE
     Dosage: STRENGTH: 100MG
     Dates: start: 2012
  9. ASPIRINA [Concomitant]
     Active Substance: ASPIRIN
     Dosage: STRENGTH: 100MG
     Dates: start: 2012
  10. SOLOSTAR [Concomitant]
     Active Substance: DEVICE
     Indication: DIABETES MELLITUS
     Dates: start: 2012
  11. MAGNE-B6 [Concomitant]
     Active Substance: MAGNESIUM LACTATE\PYRIDOXINE HYDROCHLORIDE
  12. GALVUS [Concomitant]
     Active Substance: VILDAGLIPTIN
     Dates: start: 2012

REACTIONS (4)
  - Glaucoma [Not Recovered/Not Resolved]
  - Visual acuity reduced [Not Recovered/Not Resolved]
  - Vision blurred [Not Recovered/Not Resolved]
  - Renal disorder [Not Recovered/Not Resolved]

NARRATIVE: CASE EVENT DATE: 2013
